FAERS Safety Report 24967079 (Version 1)
Quarter: 2025Q1

REPORT INFORMATION
  Report Type: Spontaneous
  Country: US (occurrence: US)
  Receive Date: 20250213
  Receipt Date: 20250213
  Transmission Date: 20250409
  Serious: No
  Sender: APELLIS PHARMACEUTICALS
  Company Number: US-APELLIS-2025-APL-0000677

PATIENT

DRUGS (1)
  1. SYFOVRE [Suspect]
     Active Substance: PEGCETACOPLAN
     Indication: Product used for unknown indication

REACTIONS (5)
  - Papilloedema [Unknown]
  - Visual impairment [Unknown]
  - Retinal haemorrhage [Unknown]
  - Subretinal fluid [Unknown]
  - Neovascular age-related macular degeneration [Unknown]
